FAERS Safety Report 13592849 (Version 2)
Quarter: 2019Q4

REPORT INFORMATION
  Report Type: Spontaneous
  Country: TR (occurrence: TR)
  Receive Date: 20170530
  Receipt Date: 20191118
  Transmission Date: 20200122
  Serious: Yes (Other)
  Sender: FDA-Public Use
  Company Number: TR-TEVA-773155ISR

PATIENT
  Sex: Male

DRUGS (2)
  1. CARBOPLATIN-TEVA [Suspect]
     Active Substance: CARBOPLATIN
     Indication: ADENOCARCINOMA
     Dosage: UNKNOWN FORM STRENGHT
     Route: 042
  2. PEMETREXED. [Suspect]
     Active Substance: PEMETREXED
     Dosage: UNKNOWN FORM STRENGHT
     Route: 042

REACTIONS (1)
  - Malignant neoplasm progression [Unknown]

NARRATIVE: CASE EVENT DATE: 20141119
